FAERS Safety Report 15120368 (Version 5)
Quarter: 2018Q3

REPORT INFORMATION
  Report Type: Spontaneous
  Country: US (occurrence: US)
  Receive Date: 20180709
  Receipt Date: 20180919
  Transmission Date: 20181010
  Serious: Yes (Hospitalization)
  Sender: FDA-Public Use
  Company Number: US-TEVA-2018-US-922647

PATIENT
  Age: 37 Year
  Sex: Female

DRUGS (1)
  1. VENLAFAXINE [Suspect]
     Active Substance: VENLAFAXINE HYDROCHLORIDE
     Dosage: 450 MILLIGRAM DAILY;
     Route: 065
     Dates: start: 20180626

REACTIONS (14)
  - Maternal exposure during pregnancy [Unknown]
  - Headache [Unknown]
  - Diarrhoea [Unknown]
  - Anxiety [Unknown]
  - Product commingling [Unknown]
  - Hyperhidrosis [Unknown]
  - Condition aggravated [Unknown]
  - Drug administration error [Unknown]
  - Fatigue [Unknown]
  - Dizziness [Unknown]
  - Product packaging issue [Unknown]
  - Nausea [Unknown]
  - Malaise [Unknown]
  - Foetal exposure during pregnancy [Unknown]

NARRATIVE: CASE EVENT DATE: 20180627
